FAERS Safety Report 12908094 (Version 2)
Quarter: 2017Q1

REPORT INFORMATION
  Report Type: Spontaneous
  Country: US (occurrence: US)
  Receive Date: 20161103
  Receipt Date: 20170207
  Transmission Date: 20170428
  Serious: No
  Sender: FDA-Public Use
  Company Number: US-OTSUKA-2016_024309

PATIENT
  Sex: Female

DRUGS (2)
  1. SUMATRIPTAN. [Concomitant]
     Active Substance: SUMATRIPTAN
     Indication: PRODUCT USED FOR UNKNOWN INDICATION
     Dosage: UNK
     Route: 065
  2. ONZETRA [Suspect]
     Active Substance: SUMATRIPTAN SUCCINATE
     Indication: MIGRAINE
     Dosage: 22 MG, QD(11 MG IN EACH NOSTRIL)
     Route: 045

REACTIONS (3)
  - Drug ineffective [Unknown]
  - Headache [Unknown]
  - Product quality issue [Unknown]
